FAERS Safety Report 5769048-9 (Version None)
Quarter: 2008Q2

REPORT INFORMATION
  Report Type: 
  Country: None (occurrence: None)
  Receive Date: 20080610
  Receipt Date: 20080529
  Transmission Date: 20081010
  Serious: Yes (Other)
  Sender: FDA-Public Use
  Company Number: 2008AP000350

PATIENT
  Age: 28 Year
  Sex: Male

DRUGS (6)
  1. PAROXETINE HCL [Suspect]
     Dosage: 20 MG; TAB; PO; QD; 30 MG; TAB; PO; QD; 20 MG; TAB; PO; QD; PO
     Route: 048
     Dates: start: 20010719, end: 20011107
  2. PAROXETINE HCL [Suspect]
     Dosage: 20 MG; TAB; PO; QD; 30 MG; TAB; PO; QD; 20 MG; TAB; PO; QD; PO
     Route: 048
     Dates: start: 20021001
  3. PAROXETINE HCL [Suspect]
     Dosage: 20 MG; TAB; PO; QD; 30 MG; TAB; PO; QD; 20 MG; TAB; PO; QD; PO
     Route: 048
     Dates: start: 20031113
  4. PAROXETINE HCL [Suspect]
     Dosage: 20 MG; TAB; PO; QD; 30 MG; TAB; PO; QD; 20 MG; TAB; PO; QD; PO
     Route: 048
     Dates: start: 20060206
  5. FLUOXETINE HCL [Concomitant]
  6. VALPROATE SODIUM [Concomitant]

REACTIONS (26)
  - AGGRESSION [None]
  - AGITATION [None]
  - ANGER [None]
  - ANXIETY [None]
  - CONDITION AGGRAVATED [None]
  - CONFUSIONAL STATE [None]
  - DEPRESSION [None]
  - DISTURBANCE IN ATTENTION [None]
  - DIZZINESS [None]
  - DRUG WITHDRAWAL SYNDROME [None]
  - FATIGUE [None]
  - INFLUENZA LIKE ILLNESS [None]
  - INSOMNIA [None]
  - INTENTIONAL SELF-INJURY [None]
  - LETHARGY [None]
  - MOOD SWINGS [None]
  - MUSCLE TWITCHING [None]
  - NERVOUSNESS [None]
  - OBSESSIVE-COMPULSIVE DISORDER [None]
  - PARANOIA [None]
  - SELF-INJURIOUS IDEATION [None]
  - SENSORY DISTURBANCE [None]
  - SUICIDAL IDEATION [None]
  - TREMOR [None]
  - WEIGHT INCREASED [None]
  - WITHDRAWAL SYNDROME [None]
